FAERS Safety Report 5430751-1 (Version None)
Quarter: 2007Q3

REPORT INFORMATION
  Report Type: 
  Country: None (occurrence: None)
  Receive Date: 20070830
  Receipt Date: 20061109
  Transmission Date: 20080115
  Serious: No
  Sender: FDA-Public Use
  Company Number: A0626887A

PATIENT
  Age: 76 Year
  Sex: Female

DRUGS (5)
  1. WELLBUTRIN XL [Suspect]
     Indication: DEPRESSION
     Dosage: 150MG PER DAY
     Route: 048
     Dates: start: 20050901
  2. LIBRAX [Concomitant]
  3. MULTIVITAMIN [Concomitant]
  4. CALCIUM [Concomitant]
  5. GLUCOSAMINE [Concomitant]

REACTIONS (2)
  - ALOPECIA [None]
  - DRY MOUTH [None]
